FAERS Safety Report 12044479 (Version 1)
Quarter: 2016Q1

REPORT INFORMATION
  Report Type: Report from Study
  Country: US (occurrence: US)
  Receive Date: 20160208
  Receipt Date: 20160208
  Transmission Date: 20160526
  Serious: Yes (Death, Hospitalization)
  Sender: FDA-Public Use
  Company Number: US-MALLINCKRODT-T201505726

PATIENT
  Sex: Female
  Weight: 41 kg

DRUGS (20)
  1. CLONAZEPAM. [Concomitant]
     Active Substance: CLONAZEPAM
  2. CLOTRIMAZOLE. [Concomitant]
     Active Substance: CLOTRIMAZOLE
  3. IPRATROPIUM BROMIDE/ALBUTEROL SULFATE [Concomitant]
     Active Substance: ALBUTEROL SULFATE\IPRATROPIUM BROMIDE
  4. OMEPRAZOLE. [Concomitant]
     Active Substance: OMEPRAZOLE
  5. TRAZODONE [Concomitant]
     Active Substance: TRAZODONE HYDROCHLORIDE
  6. ZINC SULFATE [Concomitant]
     Active Substance: ZINC SULFATE\ZINC SULFATE ANHYDROUS
  7. HYDROMORPHONE [Concomitant]
     Active Substance: HYDROMORPHONE
  8. PAROXETINE [Concomitant]
     Active Substance: PAROXETINE\PAROXETINE HYDROCHLORIDE
  9. ATORVASTATIN [Concomitant]
     Active Substance: ATORVASTATIN
  10. FLUTICASONE FUROATE [Concomitant]
     Active Substance: FLUTICASONE FUROATE
  11. METHOCARBAMOL. [Concomitant]
     Active Substance: METHOCARBAMOL
  12. MUCINEX [Concomitant]
     Active Substance: GUAIFENESIN
  13. DENOSUMAB [Concomitant]
     Active Substance: DENOSUMAB
  14. DOXYCYCLINE. [Concomitant]
     Active Substance: DOXYCYCLINE
  15. OXYBUTYNIN [Concomitant]
     Active Substance: OXYBUTYNIN
  16. SYMBICORT [Concomitant]
     Active Substance: BUDESONIDE\FORMOTEROL FUMARATE DIHYDRATE
  17. REPOSITORY CORTICOTROPIN INJECTION [Suspect]
     Active Substance: CORTICOTROPIN
     Indication: POLYMYOSITIS
     Dosage: 80 UNITS TWICE WEEKLY FOR 12 WEEKS
     Route: 058
     Dates: start: 20151204
  18. ONDANSETRON [Concomitant]
     Active Substance: ONDANSETRON
  19. CYANOCOBALAMIN. [Concomitant]
     Active Substance: CYANOCOBALAMIN
  20. GABAPENTIN. [Concomitant]
     Active Substance: GABAPENTIN

REACTIONS (8)
  - Compartment syndrome [None]
  - Sepsis [Unknown]
  - Pneumonia [Not Recovered/Not Resolved]
  - Polymyositis [Not Recovered/Not Resolved]
  - Flatulence [Unknown]
  - Organ failure [Fatal]
  - Hepatic failure [Fatal]
  - Intestinal ischaemia [Fatal]
